FAERS Safety Report 25286301 (Version 1)
Quarter: 2025Q2

REPORT INFORMATION
  Report Type: Spontaneous
  Country: GB (occurrence: GB)
  Receive Date: 20250509
  Receipt Date: 20250509
  Transmission Date: 20250716
  Serious: Yes (Other)
  Sender: ROCHE
  Company Number: None

PATIENT
  Age: 53 Year
  Sex: Male

DRUGS (8)
  1. BEVACIZUMAB [Suspect]
     Active Substance: BEVACIZUMAB
     Indication: Colon cancer
     Route: 042
  2. DEXAMETHASONE [Concomitant]
     Active Substance: DEXAMETHASONE
     Route: 050
  3. ATROPINE [Concomitant]
     Active Substance: ATROPINE
     Route: 050
  4. ONDANSETRON [Concomitant]
     Active Substance: ONDANSETRON
     Route: 050
  5. IRINOTECAN [Concomitant]
     Active Substance: IRINOTECAN
     Route: 050
  6. FLUOROURACIL [Concomitant]
     Active Substance: FLUOROURACIL
     Route: 050
  7. PEGFILGRASTIM [Concomitant]
     Active Substance: PEGFILGRASTIM
     Route: 050
  8. RIVAROXABAN [Concomitant]
     Active Substance: RIVAROXABAN
     Route: 050

REACTIONS (2)
  - Neuropathy peripheral [Not Recovered/Not Resolved]
  - Penile infection [Unknown]

NARRATIVE: CASE EVENT DATE: 20250505
